FAERS Safety Report 15484580 (Version 3)
Quarter: 2018Q4

REPORT INFORMATION
  Report Type: Spontaneous
  Country: US (occurrence: US)
  Receive Date: 20181010
  Receipt Date: 20181107
  Transmission Date: 20190205
  Serious: Yes (Other)
  Sender: FDA-Public Use
  Company Number: US-009507513-1810USA004316

PATIENT
  Age: 28 Year
  Sex: Female
  Weight: 79.37 kg

DRUGS (2)
  1. NEXPLANON [Suspect]
     Active Substance: ETONOGESTREL
     Indication: CONTRACEPTION
     Dosage: 1 ROD EVERY 3 YEARS, RIGHT ARM
     Route: 058
     Dates: start: 20180919, end: 20180926
  2. ETONOGESTREL IMPLANT [Concomitant]
     Dosage: UNK

REACTIONS (7)
  - Neuralgia [Recovered/Resolved]
  - Hypoaesthesia [Recovered/Resolved]
  - Device dislocation [Recovered/Resolved]
  - Pain in extremity [Recovered/Resolved]
  - Device deployment issue [Recovered/Resolved]
  - Implant site fibrosis [Unknown]
  - Paraesthesia [Recovered/Resolved]

NARRATIVE: CASE EVENT DATE: 20180919
